FAERS Safety Report 6469267-2 (Version None)
Quarter: 2009Q4

REPORT INFORMATION
  Report Type: 
  Country: None (occurrence: None)
  Receive Date: 20091203
  Receipt Date: 20071023
  Transmission Date: 20100525
  Serious: Yes (Life-Threatening, Hospitalization)
  Sender: FDA-Public Use
  Company Number: NL-LLY01-NL200707001072

PATIENT
  Sex: Male
  Weight: 52 kg

DRUGS (3)
  1. STRATTERA [Suspect]
     Indication: ATTENTION DEFICIT/HYPERACTIVITY DISORDER
     Dosage: 180MG IN THE MORNING
     Dates: start: 20070117
  2. STRATTERA [Suspect]
     Dosage: 5 D/F, 300MG
     Dates: start: 20070117
  3. STRATTERA [Suspect]
     Dosage: 20 D/F, 1200MG
     Dates: start: 20070117

REACTIONS (5)
  - DRUG TOXICITY [None]
  - HEART RATE INCREASED [None]
  - INTENTIONAL OVERDOSE [None]
  - LOSS OF CONSCIOUSNESS [None]
  - MYDRIASIS [None]
